FAERS Safety Report 10271333 (Version 1)
Quarter: 2014Q3

REPORT INFORMATION
  Report Type: Spontaneous
  Country: FR (occurrence: FR)
  Receive Date: 20140701
  Receipt Date: 20140701
  Transmission Date: 20150326
  Serious: Yes (Other)
  Sender: FDA-Public Use
  Company Number: FR-PFIZER INC-2014175410

PATIENT
  Age: 39 Year
  Sex: Female

DRUGS (7)
  1. CLINDAMYCIN [Suspect]
     Active Substance: CLINDAMYCIN\CLINDAMYCIN PHOSPHATE
     Indication: CEREBRAL TOXOPLASMOSIS
     Dosage: 600 MG, 3X/DAY
     Route: 048
     Dates: start: 20140527, end: 20140608
  2. ADIAZINE [Suspect]
     Active Substance: SULFADIAZINE
     Indication: CEREBRAL TOXOPLASMOSIS
     Dosage: 1 G, EVERY 4 HRS
     Route: 048
     Dates: start: 20140425, end: 20140527
  3. ZAMUDOL [Suspect]
     Active Substance: TRAMADOL HYDROCHLORIDE
     Dosage: 50 MG, AS NEEDED
     Route: 048
     Dates: start: 20140522, end: 20140525
  4. PYRIMETHAMINE [Concomitant]
     Active Substance: PYRIMETHAMINE
     Indication: CEREBRAL TOXOPLASMOSIS
     Dosage: 50 MG, DAILY
  5. PIPERACILLIN/TAZOBACTAM PANPHARMA [Suspect]
     Active Substance: PIPERACILLIN SODIUM\TAZOBACTAM SODIUM
     Dosage: 4 G, 3X/DAY
     Route: 042
     Dates: start: 20140509
  6. PRIMPERAN [Suspect]
     Active Substance: METOCLOPRAMIDE HYDROCHLORIDE
     Dosage: 10 MG, AS NEEDED
     Route: 048
     Dates: start: 20140525
  7. TIVICAY [Suspect]
     Active Substance: DOLUTEGRAVIR SODIUM
     Indication: HIV INFECTION
     Dosage: 50 MG, 2X/DAY
     Route: 048
     Dates: start: 20140430, end: 20140530

REACTIONS (1)
  - Cholestasis [Recovering/Resolving]

NARRATIVE: CASE EVENT DATE: 20140601
